FAERS Safety Report 8896481 (Version 1)
Quarter: 2012Q4

REPORT INFORMATION
  Report Type: Spontaneous
  Country: US (occurrence: None)
  Receive Date: 20121107
  Receipt Date: 20121107
  Transmission Date: 20130627
  Serious: Yes (Hospitalization)
  Sender: FDA-Public Use
  Company Number: None

PATIENT
  Age: 76 Year
  Sex: Female
  Weight: 41.9 kg

DRUGS (11)
  1. OMEPRAZOLE [Suspect]
  2. PREDNISONE [Concomitant]
  3. LIPITOR [Concomitant]
  4. RENVELA [Concomitant]
  5. METOPROLOL [Concomitant]
  6. SYNTHROID [Concomitant]
  7. MS CONTIN [Concomitant]
  8. ASA [Concomitant]
  9. CENTRUM SILVER [Concomitant]
  10. DOCUSATE [Concomitant]
  11. SENNA [Concomitant]

REACTIONS (6)
  - Abdominal pain [None]
  - Abdominal pain upper [None]
  - Condition aggravated [None]
  - Tubulointerstitial nephritis [None]
  - Therapy cessation [None]
  - Dialysis [None]
